FAERS Safety Report 4583212-6 (Version None)
Quarter: 2005Q1

REPORT INFORMATION
  Report Type: 
  Country: None (occurrence: None)
  Receive Date: 20050125
  Receipt Date: 20041012
  Transmission Date: 20050727
  Serious: No
  Sender: FDA-Public Use
  Company Number: USA030844307

PATIENT
  Age: 78 Year
  Sex: Female

DRUGS (1)
  1. FORTEO [Suspect]
     Indication: OSTEOPOROSIS
     Dosage: 20 UG DAY
     Dates: start: 20030325

REACTIONS (8)
  - BACK PAIN [None]
  - BLOOD URINE [None]
  - CONTUSION [None]
  - CYSTITIS [None]
  - DYSURIA [None]
  - FALL [None]
  - PAINFUL RESPIRATION [None]
  - POLLAKIURIA [None]
